FAERS Safety Report 8715354 (Version 3)
Quarter: 2012Q4

REPORT INFORMATION
  Report Type: 
  Country: FR (occurrence: FR)
  Receive Date: 20120809
  Receipt Date: 20121008
  Transmission Date: 20130627
  Serious: Yes (Death, Life-Threatening, Hospitalization)
  Sender: FDA-Public Use
  Company Number: FR-GLAXOSMITHKLINE-B0819384A

PATIENT
  Age: 39 Year
  Sex: Female
  Weight: 60 kg

DRUGS (12)
  1. ARIXTRA [Suspect]
     Indication: DEEP VEIN THROMBOSIS
     Dosage: 7.5MG Per day
     Route: 058
     Dates: start: 201202, end: 201206
  2. VEMURAFENIB [Concomitant]
     Dosage: 1920MG Per day
     Dates: start: 20120508
  3. OXYCONTIN [Concomitant]
     Route: 048
     Dates: start: 20120508
  4. DOLIPRANE [Concomitant]
     Dosage: 1TAB Four times per day
     Route: 048
     Dates: start: 20120508
  5. SOLUPRED [Concomitant]
     Dosage: 3TAB Per day
     Route: 048
     Dates: start: 20120508
  6. NEFOPAM [Concomitant]
     Route: 048
     Dates: start: 20120508
  7. LYRICA [Concomitant]
     Dosage: 1CAP Twice per day
     Route: 048
     Dates: start: 20120508
  8. BIPROFENID [Concomitant]
     Route: 048
     Dates: start: 20120508
  9. EUPANTOL [Concomitant]
     Dosage: 1TAB Per day
     Route: 048
     Dates: start: 20120508
  10. FENTANYL [Concomitant]
     Route: 060
     Dates: start: 20120508
  11. ATARAX [Concomitant]
     Dosage: 1TAB Per day
     Route: 048
     Dates: start: 20120508
  12. FORLAX [Concomitant]
     Route: 048
     Dates: start: 20120508

REACTIONS (10)
  - Cerebral haematoma [Fatal]
  - Coma [Unknown]
  - Brain herniation [Unknown]
  - Incorrect drug administration duration [Unknown]
  - Nervous system disorder [Unknown]
  - General physical health deterioration [Unknown]
  - Lung disorder [Unknown]
  - Bedridden [Unknown]
  - Respiratory disorder [Unknown]
  - Anxiety [Unknown]
